FAERS Safety Report 9441813 (Version 2)
Quarter: 2013Q3

REPORT INFORMATION
  Report Type: Spontaneous
  Country: US (occurrence: US)
  Receive Date: 20130806
  Receipt Date: 20130812
  Transmission Date: 20140515
  Serious: No
  Sender: FDA-Public Use
  Company Number: US-PFIZER INC-2013224186

PATIENT
  Sex: 0

DRUGS (1)
  1. TETRACYCLINE HCL [Suspect]
     Dosage: UNK
     Dates: start: 1969

REACTIONS (5)
  - Tooth discolouration [Unknown]
  - Tooth injury [Unknown]
  - Self esteem decreased [Unknown]
  - Physical product label issue [Unknown]
  - Circumstance or information capable of leading to medication error [Unknown]
